FAERS Safety Report 9756433 (Version 1)
Quarter: 2013Q4

REPORT INFORMATION
  Report Type: Spontaneous
  Country: US (occurrence: US)
  Receive Date: 20131213
  Receipt Date: 20131213
  Transmission Date: 20140711
  Serious: No
  Sender: FDA-Public Use
  Company Number: US-GLAXOSMITHKLINE-A1041027A

PATIENT
  Age: 66 Year
  Sex: Female
  Weight: 95 kg

DRUGS (7)
  1. EQUATE NTS 14MG, CLEAR [Suspect]
     Indication: EX-TOBACCO USER
     Dates: start: 20130710, end: 20130909
  2. ANTIHYPERTENSIVE [Concomitant]
  3. FISH OIL [Concomitant]
  4. CALCIUM [Concomitant]
  5. BLOOD THINNER [Concomitant]
  6. ASPIRIN [Concomitant]
  7. LIPITOR [Concomitant]

REACTIONS (2)
  - Rash [Not Recovered/Not Resolved]
  - Pruritus [Not Recovered/Not Resolved]
